FAERS Safety Report 8863291 (Version 1)
Quarter: 2012Q4

REPORT INFORMATION
  Report Type: 
  Country: US (occurrence: US)
  Receive Date: 20121025
  Receipt Date: 20121025
  Transmission Date: 20130627
  Serious: Yes (Other)
  Sender: FDA-Public Use
  Company Number: US-ASTRAZENECA-2012SE79518

PATIENT
  Age: 58 Year
  Sex: Male

DRUGS (6)
  1. LISINOPRIL [Suspect]
     Route: 048
  2. SEROQUEL [Suspect]
     Route: 048
  3. SEROQUEL [Suspect]
     Route: 048
  4. BUSPIRONE [Concomitant]
  5. METHOCARBAMOL [Concomitant]
  6. CLONAZEPAM [Concomitant]

REACTIONS (14)
  - Suicidal ideation [Unknown]
  - Polyp [Unknown]
  - Intervertebral disc protrusion [Unknown]
  - Peripheral nerve lesion [Unknown]
  - Clavicle fracture [Unknown]
  - Balance disorder [Unknown]
  - Psychiatric symptom [Unknown]
  - Anxiety [Unknown]
  - Accident [Unknown]
  - Post-traumatic stress disorder [Recovering/Resolving]
  - Flashback [Unknown]
  - Depression [Unknown]
  - Dizziness [Unknown]
  - Intentional drug misuse [Unknown]
